FAERS Safety Report 25860038 (Version 1)
Quarter: 2025Q3

REPORT INFORMATION
  Report Type: Spontaneous
  Country: US (occurrence: None)
  Receive Date: 20250927
  Receipt Date: 20250927
  Transmission Date: 20251020
  Serious: No
  Sender: FDA-CTU
  Company Number: None

PATIENT
  Sex: Male

DRUGS (1)
  1. SALICYLIC ACID [Suspect]
     Active Substance: SALICYLIC ACID
     Dates: end: 20250912

REACTIONS (5)
  - Incorrect dosage administered [None]
  - Application site burn [None]
  - Application site irritation [None]
  - Product formulation issue [None]
  - Product quality issue [None]
